FAERS Safety Report 20035908 (Version 2)
Quarter: 2022Q1

REPORT INFORMATION
  Report Type: Spontaneous
  Country: DE (occurrence: DE)
  Receive Date: 20211105
  Receipt Date: 20220130
  Transmission Date: 20220424
  Serious: Yes (Other)
  Sender: FDA-Public Use
  Company Number: DE-002147023-NVSC2021DE244882

PATIENT
  Age: 75 Year
  Sex: Female

DRUGS (1)
  1. XOLAIR [Suspect]
     Active Substance: OMALIZUMAB
     Indication: Pneumatosis
     Route: 058

REACTIONS (4)
  - Guillain-Barre syndrome [Unknown]
  - Ataxia [Unknown]
  - Limb discomfort [Unknown]
  - Off label use [Unknown]
